FAERS Safety Report 4940328-X (Version None)
Quarter: 2006Q1

REPORT INFORMATION
  Report Type: 
  Country: None (occurrence: None)
  Receive Date: 20060310
  Receipt Date: 20050823
  Transmission Date: 20060701
  Serious: Yes (Disabling, Other)
  Sender: FDA-Public Use
  Company Number: US-MERCK-0508USA03901

PATIENT
  Age: 80 Year
  Sex: Female
  Weight: 61 kg

DRUGS (5)
  1. VIOXX [Suspect]
     Indication: OSTEOARTHRITIS
     Route: 048
     Dates: start: 19990101, end: 20040930
  2. VIOXX [Suspect]
     Indication: BACK PAIN
     Route: 048
     Dates: start: 19990101, end: 20040930
  3. ASPIRIN [Concomitant]
     Route: 065
     Dates: start: 19990101
  4. TYLENOL (CAPLET) [Concomitant]
     Indication: PAIN
     Route: 065
  5. ASPIRIN AND CODEINE PHOSPHATE [Concomitant]
     Route: 065

REACTIONS (6)
  - BLOOD CHOLESTEROL INCREASED [None]
  - CARDIAC MURMUR [None]
  - CAROTID ARTERY STENOSIS [None]
  - HEART INJURY [None]
  - HYPERTENSION [None]
  - MYOCARDIAL INFARCTION [None]
